FAERS Safety Report 15595433 (Version 2)
Quarter: 2018Q4

REPORT INFORMATION
  Report Type: Report from Study
  Country: None (occurrence: US)
  Receive Date: 20181107
  Receipt Date: 20181113
  Transmission Date: 20190205
  Serious: Yes (Hospitalization)
  Sender: FDA-Public Use
  Company Number: US-ABBVIE-18K-163-2546019-00

PATIENT
  Age: 17 Year
  Sex: Male
  Weight: 58.2 kg

DRUGS (3)
  1. OMEPRAZOLE. [Concomitant]
     Active Substance: OMEPRAZOLE
     Indication: GASTROOESOPHAGEAL REFLUX PROPHYLAXIS
  2. HUMIRA [Suspect]
     Active Substance: ADALIMUMAB
     Indication: JUVENILE IDIOPATHIC ARTHRITIS
     Route: 058
     Dates: start: 201810, end: 20181027
  3. BACTRIM [Concomitant]
     Active Substance: SULFAMETHOXAZOLE\TRIMETHOPRIM
     Indication: INFECTION PROPHYLAXIS

REACTIONS (12)
  - Drug ineffective [Unknown]
  - White blood cell count increased [Recovering/Resolving]
  - Pyrexia [Recovered/Resolved]
  - Arthritis [Recovering/Resolving]
  - Serum ferritin increased [Recovering/Resolving]
  - Fibrin D dimer increased [Recovering/Resolving]
  - Rash [Recovering/Resolving]
  - Still^s disease [Recovering/Resolving]
  - Anaemia [Not Recovered/Not Resolved]
  - C-reactive protein increased [Recovering/Resolving]
  - Red blood cell sedimentation rate increased [Not Recovered/Not Resolved]
  - Platelet count increased [Not Recovered/Not Resolved]

NARRATIVE: CASE EVENT DATE: 201810
